FAERS Safety Report 9827979 (Version 1)
Quarter: 2014Q1

REPORT INFORMATION
  Report Type: Spontaneous
  Country: US (occurrence: US)
  Receive Date: 20140117
  Receipt Date: 20140117
  Transmission Date: 20141002
  Serious: Yes (Death)
  Sender: FDA-Public Use
  Company Number: US-MPIJNJ-2014MPI000077

PATIENT
  Sex: Female

DRUGS (1)
  1. VELCADE [Suspect]
     Indication: PLASMA CELL MYELOMA
     Dosage: UNK, CYCLIC (1, 4, 8, 11 OF EACH 21 DAY CYCLE)
     Route: 042
     Dates: end: 20131213

REACTIONS (1)
  - Death [Fatal]
